FAERS Safety Report 13168532 (Version 3)
Quarter: 2017Q1

REPORT INFORMATION
  Report Type: Spontaneous
  Country: US (occurrence: US)
  Receive Date: 20170131
  Receipt Date: 20170208
  Transmission Date: 20170428
  Serious: Yes (Other)
  Sender: FDA-Public Use
  Company Number: US-GLAXOSMITHKLINE-US2017012217

PATIENT
  Weight: 125.17 kg

DRUGS (1)
  1. BREO ELLIPTA [Suspect]
     Active Substance: FLUTICASONE FUROATE\VILANTEROL TRIFENATATE
     Indication: PRODUCT USED FOR UNKNOWN INDICATION
     Dosage: UNK, U
     Route: 055

REACTIONS (11)
  - Pneumonia [Unknown]
  - Pyrexia [Unknown]
  - Productive cough [Unknown]
  - Dyspnoea [Unknown]
  - Cough [Unknown]
  - Confusional state [Unknown]
  - Chronic obstructive pulmonary disease [Unknown]
  - Ill-defined disorder [Not Recovered/Not Resolved]
  - Mental status changes [Unknown]
  - Upper respiratory tract infection [Unknown]
  - Cerebrovascular accident [Unknown]
